FAERS Safety Report 18490019 (Version 2)
Quarter: 2020Q4

REPORT INFORMATION
  Report Type: Spontaneous
  Country: CA (occurrence: CA)
  Receive Date: 20201111
  Receipt Date: 20201208
  Transmission Date: 20210114
  Serious: No
  Sender: FDA-Public Use
  Company Number: CA-TOLMAR, INC.-20CA023725

PATIENT

DRUGS (2)
  1. ELIGARD [Suspect]
     Active Substance: LEUPROLIDE ACETATE
     Dosage: 30 MG
     Route: 065
  2. ELIGARD [Suspect]
     Active Substance: LEUPROLIDE ACETATE
     Indication: PRODUCT USED FOR UNKNOWN INDICATION
     Dosage: 30 MG
     Route: 065

REACTIONS (1)
  - Intercepted product storage error [Unknown]
